FAERS Safety Report 19507289 (Version 1)
Quarter: 2021Q3

REPORT INFORMATION
  Report Type: Spontaneous
  Country: IT (occurrence: IT)
  Receive Date: 20210708
  Receipt Date: 20210708
  Transmission Date: 20211014
  Serious: Yes (Other)
  Sender: FDA-Public Use
  Company Number: IT-MYLANLABS-2021M1038606

PATIENT
  Sex: Male

DRUGS (2)
  1. AZACITIDINE. [Suspect]
     Active Substance: AZACITIDINE
     Indication: BLASTIC PLASMACYTOID DENDRITIC CELL NEOPLASIA
     Dosage: UNK
     Route: 065
     Dates: start: 202006
  2. VENETOCLAX. [Suspect]
     Active Substance: VENETOCLAX
     Indication: BLASTIC PLASMACYTOID DENDRITIC CELL NEOPLASIA
     Dosage: 1, UNK, QD (100/200/400 MG PER DAY IN ADDITION TO MONOCLONAL)
     Route: 048
     Dates: start: 202006

REACTIONS (3)
  - Blastic plasmacytoid dendritic cell neoplasia [Recovering/Resolving]
  - Metastatic lymphoma [Unknown]
  - Off label use [Not Recovered/Not Resolved]

NARRATIVE: CASE EVENT DATE: 202006
